FAERS Safety Report 16333699 (Version 1)
Quarter: 2019Q2

REPORT INFORMATION
  Report Type: Report from Study
  Country: CA (occurrence: CA)
  Receive Date: 20190520
  Receipt Date: 20190520
  Transmission Date: 20190711
  Serious: Yes (Other)
  Sender: FDA-Public Use
  Company Number: CA-JNJFOC-20190518030

PATIENT
  Age: 42 Year
  Sex: Female
  Weight: 53.52 kg

DRUGS (1)
  1. STELARA [Suspect]
     Active Substance: USTEKINUMAB
     Indication: CROHN^S DISEASE
     Dosage: STRENGTH = 90 MG
     Route: 058
     Dates: start: 20190417

REACTIONS (3)
  - Product use issue [Unknown]
  - Off label use [Unknown]
  - Oral neoplasm [Recovered/Resolved]

NARRATIVE: CASE EVENT DATE: 2019
